FAERS Safety Report 23070672 (Version 3)
Quarter: 2023Q4

REPORT INFORMATION
  Report Type: Other
  Country: CA (occurrence: None)
  Receive Date: 20231016
  Receipt Date: 20231108
  Transmission Date: 20240109
  Serious: Yes (Other)
  Sender: FDA-Public Use
  Company Number: CA-ROCHE-3213693

PATIENT
  Age: 21 Year
  Sex: Female

DRUGS (1)
  1. OCREVUS [Suspect]
     Active Substance: OCRELIZUMAB
     Indication: Relapsing-remitting multiple sclerosis
     Dosage: 300 MG AT DAY 0 AND 14, THEN 600 MG EVERY 6 MONTH
     Route: 042
     Dates: start: 20190823

REACTIONS (12)
  - Lyme disease [Unknown]
  - Nausea [Unknown]
  - Memory impairment [Unknown]
  - Head discomfort [Unknown]
  - Speech disorder [Unknown]
  - Dysphemia [Unknown]
  - Cognitive disorder [Unknown]
  - Fatigue [Unknown]
  - Eye pain [Unknown]
  - Stress [Unknown]
  - Neutrophil count decreased [Unknown]
  - Crying [Recovered/Resolved]

NARRATIVE: CASE EVENT DATE: 20200724
